FAERS Safety Report 7787305-1 (Version None)
Quarter: 2011Q3

REPORT INFORMATION
  Report Type: 
  Country: None (occurrence: None)
  Receive Date: 20110929
  Receipt Date: 20110922
  Transmission Date: 20111222
  Serious: Yes (Congenital Anomaly)
  Sender: FDA-Public Use
  Company Number: PHHY2011GB83957

PATIENT
  Sex: Female
  Weight: 1.76 kg

DRUGS (5)
  1. ETHAMBUTOL HYDROCHLORIDE [Suspect]
     Indication: TUBERCULOSIS
     Dosage: 800 MG, QD
     Route: 064
     Dates: start: 20090423, end: 20090626
  2. RIFAMPIN [Suspect]
     Indication: TUBERCULOSIS
     Dosage: 5 DF, UNK
     Route: 064
     Dates: start: 20090423, end: 20090623
  3. RIFAMPIN AND ISONIAZID [Concomitant]
     Dosage: 2 DF, UNK
     Route: 064
     Dates: start: 20090623, end: 20090628
  4. ACYCLOVIR [Concomitant]
     Indication: GENITAL HERPES
     Route: 064
     Dates: start: 20070301
  5. PYRIDOXINE HCL [Concomitant]
     Dosage: 10 MG, QD
     Route: 064
     Dates: start: 20090423, end: 20110623

REACTIONS (1)
  - DEAFNESS NEUROSENSORY [None]
